FAERS Safety Report 4311084-3 (Version None)
Quarter: 2004Q1

REPORT INFORMATION
  Report Type: 
  Country: None (occurrence: None)
  Receive Date: 20040302
  Receipt Date: 20040220
  Transmission Date: 20041129
  Serious: Yes (Death, Life-Threatening, Hospitalization)
  Sender: FDA-Public Use
  Company Number: NSADSS2003000555

PATIENT
  Age: 20 Year
  Sex: Male
  Weight: 65.318 kg

DRUGS (7)
  1. REMICADE [Suspect]
     Indication: COLITIS ULCERATIVE
     Dosage: 400 MG, 1 IN 1 AS NECESSARY, INTRAVENOUS DRIP
     Route: 041
     Dates: start: 20020108, end: 20020108
  2. REMICADE [Suspect]
     Indication: COLITIS ULCERATIVE
     Dosage: 400 MG, 1 IN 1 AS NECESSARY, INTRAVENOUS DRIP
     Route: 041
     Dates: start: 20011224, end: 20011224
  3. REMICADE [Suspect]
     Indication: COLITIS ULCERATIVE
     Dosage: 400 MG, 1 IN 1 AS NECESSARY, INTRAVENOUS DRIP
     Route: 041
     Dates: start: 20011024, end: 20011024
  4. REMICADE [Suspect]
     Indication: COLITIS ULCERATIVE
     Dosage: 400 MG, 1 IN 1 AS NECESSARY, INTRAVENOUS DRIP
     Route: 041
     Dates: start: 20011011, end: 20011011
  5. MERCAPTOPURINE [Concomitant]
  6. ASACOL [Concomitant]
  7. PREDNISONE [Concomitant]

REACTIONS (4)
  - CHOLANGITIS [None]
  - HEPATIC FUNCTION ABNORMAL [None]
  - HEPATOSPLENOMEGALY [None]
  - NATURAL KILLER-CELL LEUKAEMIA [None]
